FAERS Safety Report 6028855-8 (Version None)
Quarter: 2008Q4

REPORT INFORMATION
  Report Type: 
  Country: None (occurrence: None)
  Receive Date: 20081222
  Receipt Date: 20081024
  Transmission Date: 20090506
  Serious: No
  Sender: FDA-Public Use
  Company Number: ALL1-2008-03112

PATIENT
  Sex: Female

DRUGS (1)
  1. VYVANSE [Suspect]
     Dosage: HALF OF 70 MG CAPSULE, 1X/DAY:QD, ORAL ; 70 MG, 1X/DAY:QD,ORAL
     Route: 048

REACTIONS (2)
  - DIZZINESS [None]
  - DRUG PRESCRIBING ERROR [None]
